FAERS Safety Report 5414663-5 (Version None)
Quarter: 2007Q3

REPORT INFORMATION
  Report Type: 
  Country: None (occurrence: None)
  Receive Date: 20070713
  Receipt Date: 20070404
  Transmission Date: 20080115
  Serious: Yes (Hospitalization)
  Sender: FDA-Public Use
  Company Number: US-JNJFOC-20070203086

PATIENT
  Age: 42 Year
  Sex: Female
  Weight: 113.3993 kg

DRUGS (7)
  1. ORTHO EVRA [Suspect]
     Indication: DRUG USE FOR UNKNOWN INDICATION
     Dosage: 1 DOSE(S), 3 IN 4 WEEK, TRANSDERMAL
     Route: 062
     Dates: start: 20040301
  2. PENTASA [Concomitant]
  3. PROPRANOLOL [Concomitant]
  4. LIPITOR [Concomitant]
  5. AMITRIPTYLINE HCL [Concomitant]
  6. PERCOCET [Concomitant]
  7. SYNVISC (HYALURONATE SODIUM) [Concomitant]

REACTIONS (3)
  - DEEP VEIN THROMBOSIS [None]
  - METRORRHAGIA [None]
  - PELVIC MASS [None]
